FAERS Safety Report 12220623 (Version 2)
Quarter: 2016Q2

REPORT INFORMATION
  Report Type: Spontaneous
  Country: US (occurrence: US)
  Receive Date: 20160330
  Receipt Date: 20160421
  Transmission Date: 20160815
  Serious: No
  Sender: FDA-Public Use
  Company Number: US-ASTRAZENECA-2016SE30964

PATIENT
  Sex: Female
  Weight: 95.3 kg

DRUGS (1)
  1. PULMICORT FLEXHALER [Suspect]
     Active Substance: BUDESONIDE
     Indication: INFLUENZA
     Dosage: 180 MCG ONE INHALATION TWICE A DAY
     Route: 055
     Dates: start: 20160314

REACTIONS (5)
  - Drug dose omission [Unknown]
  - Product quality issue [Unknown]
  - Underdose [Unknown]
  - Drug ineffective for unapproved indication [Unknown]
  - Wheezing [Unknown]

NARRATIVE: CASE EVENT DATE: 20160314
